FAERS Safety Report 11764907 (Version 1)
Quarter: 2015Q4

REPORT INFORMATION
  Report Type: Spontaneous
  Country: US (occurrence: US)
  Receive Date: 20151120
  Receipt Date: 20151120
  Transmission Date: 20160304
  Serious: No
  Sender: FDA-Public Use
  Company Number: US-ELI_LILLY_AND_COMPANY-US201308009199

PATIENT
  Sex: Female

DRUGS (1)
  1. FORTEO [Suspect]
     Active Substance: TERIPARATIDE
     Indication: OSTEOPOROSIS
     Dosage: UNK, QD

REACTIONS (13)
  - Injection site pruritus [Unknown]
  - Nausea [Unknown]
  - Injection site pain [Unknown]
  - Arthralgia [Unknown]
  - Injection site erythema [Unknown]
  - Injection site swelling [Unknown]
  - Muscle spasms [Unknown]
  - Blood disorder [Unknown]
  - Paraesthesia [Unknown]
  - Injection site haemorrhage [Unknown]
  - Pain [Unknown]
  - Injection site bruising [Unknown]
  - Blister [Unknown]
